FAERS Safety Report 4979173-8 (Version None)
Quarter: 2006Q2

REPORT INFORMATION
  Report Type: 
  Country: None (occurrence: None)
  Receive Date: 20060421
  Receipt Date: 20060323
  Transmission Date: 20061013
  Serious: Yes (Hospitalization)
  Sender: FDA-Public Use
  Company Number: GB-GILEAD-2006-0009376

PATIENT
  Sex: Male

DRUGS (7)
  1. TRUVADA [Suspect]
     Indication: HIV INFECTION
     Route: 048
     Dates: start: 20060201, end: 20060323
  2. EFAVIRENZ [Concomitant]
     Indication: HIV INFECTION
     Route: 048
     Dates: start: 20040101
  3. GENTAMICIN [Concomitant]
     Indication: SEPSIS
     Route: 042
     Dates: start: 20060308, end: 20060318
  4. TAZOCIN [Concomitant]
     Indication: SEPSIS
     Route: 042
     Dates: start: 20060308, end: 20060318
  5. BUMETANIDE [Concomitant]
     Indication: BLOOD PRESSURE INCREASED
     Route: 048
  6. OMEPRAZID [Concomitant]
     Route: 048
  7. ITRACONAZOLE [Concomitant]
     Route: 048

REACTIONS (2)
  - BLOOD POTASSIUM INCREASED [None]
  - RENAL FAILURE [None]
